FAERS Safety Report 7328208-6 (Version None)
Quarter: 2011Q1

REPORT INFORMATION
  Report Type: 
  Country: None (occurrence: None)
  Receive Date: 20110303
  Receipt Date: 20110221
  Transmission Date: 20110831
  Serious: Yes (Other)
  Sender: FDA-Public Use
  Company Number: US-JNJFOC-20101204399

PATIENT
  Sex: Male

DRUGS (2)
  1. RISPERDAL [Suspect]
     Indication: ABNORMAL BEHAVIOUR
     Route: 048
  2. RISPERDAL [Suspect]
     Indication: SLEEP DISORDER
     Route: 048

REACTIONS (7)
  - TORTICOLLIS [None]
  - DYSTONIA [None]
  - TARDIVE DYSKINESIA [None]
  - AKATHISIA [None]
  - GENERAL PHYSICAL HEALTH DETERIORATION [None]
  - DIABETES MELLITUS [None]
  - BLEPHAROSPASM [None]
